FAERS Safety Report 23636716 (Version 1)
Quarter: 2024Q1

REPORT INFORMATION
  Report Type: Spontaneous
  Country: JP (occurrence: JP)
  Receive Date: 20240315
  Receipt Date: 20240315
  Transmission Date: 20240409
  Serious: Yes (Hospitalization)
  Sender: FDA-Public Use
  Company Number: JP-DAIICHI SANKYO, INC.-DSJ-2024-111193

PATIENT
  Age: 67 Year
  Sex: Female

DRUGS (2)
  1. EDOXABAN TOSYLATE [Suspect]
     Active Substance: EDOXABAN TOSYLATE
     Indication: Pulmonary hypertension
     Dosage: UNK
     Route: 048
  2. UNSPECIFIED INGREDIENT [Concomitant]
     Active Substance: UNSPECIFIED INGREDIENT
     Indication: Seronegative arthritis
     Dosage: UNK
     Route: 048

REACTIONS (4)
  - Tumour thrombosis [Unknown]
  - Metastases to lymph nodes [Unknown]
  - Lung adenocarcinoma [Unknown]
  - Off label use [Unknown]
